FAERS Safety Report 8990198 (Version 2)
Quarter: 2013Q1

REPORT INFORMATION
  Report Type: Spontaneous
  Country: US (occurrence: US)
  Receive Date: 20121228
  Receipt Date: 20130206
  Transmission Date: 20140127
  Serious: No
  Sender: FDA-Public Use
  Company Number: US-PFIZER INC-2012331057

PATIENT
  Sex: Male

DRUGS (2)
  1. CARDURA [Suspect]
     Dosage: UNK
  2. VIAGRA [Suspect]
     Dosage: UNK

REACTIONS (2)
  - Fatigue [Unknown]
  - Asthenia [Unknown]
